FAERS Safety Report 6895731-8 (Version None)
Quarter: 2010Q3

REPORT INFORMATION
  Report Type: 
  Country: None (occurrence: None)
  Receive Date: 20100802
  Receipt Date: 20100723
  Transmission Date: 20110219
  Serious: Yes (Other)
  Sender: FDA-Public Use
  Company Number: IT-AMGEN-QUU427272

PATIENT
  Sex: Female

DRUGS (5)
  1. ENBREL [Suspect]
     Indication: RHEUMATOID ARTHRITIS
     Dosage: 50 MG WEEKLY
     Route: 058
     Dates: start: 20041221, end: 20100203
  2. SALAZOPYRIN EN [Concomitant]
  3. RAMIPRIL [Concomitant]
  4. TRAMADOL HYDROCHLORIDE AND ACETAMINOPHEN [Concomitant]
  5. ESIDRIX [Concomitant]

REACTIONS (1)
  - VAGINAL HAEMORRHAGE [None]
